FAERS Safety Report 14288718 (Version 1)
Quarter: 2017Q4

REPORT INFORMATION
  Report Type: Report from Study
  Country: None (occurrence: RO)
  Receive Date: 20171215
  Receipt Date: 20171215
  Transmission Date: 20180321
  Serious: Yes (Other)
  Sender: FDA-Public Use
  Company Number: RO-ABBVIE-17K-135-2193849-00

PATIENT
  Age: 45 Year
  Sex: Female

DRUGS (1)
  1. DUODOPA [Suspect]
     Active Substance: CARBIDOPA\LEVODOPA
     Indication: PARKINSON^S DISEASE
     Dosage: MD=8.50??CD=2.20??ED=1.10
     Route: 050
     Dates: start: 20160408

REACTIONS (2)
  - Basal cell carcinoma [Recovering/Resolving]
  - Seborrhoeic dermatitis [Recovering/Resolving]

NARRATIVE: CASE EVENT DATE: 20171213
